FAERS Safety Report 19170654 (Version 1)
Quarter: 2021Q2

REPORT INFORMATION
  Report Type: Spontaneous
  Country: US (occurrence: US)
  Receive Date: 20210422
  Receipt Date: 20210422
  Transmission Date: 20210717
  Serious: Yes (Other)
  Sender: FDA-Public Use
  Company Number: US-PFIZER INC-2021216295

PATIENT
  Age: 46 Year
  Sex: Female
  Weight: 47 kg

DRUGS (3)
  1. HYSKON [Concomitant]
     Active Substance: DEXTRAN 70
     Dosage: 900 ML
     Route: 015
  2. FUROSEMIDE. [Suspect]
     Active Substance: FUROSEMIDE
     Indication: POLYURIA
     Dosage: 20 MG (REPEATED IN 5 MINUTES)
  3. FUROSEMIDE. [Suspect]
     Active Substance: FUROSEMIDE
     Dosage: 100 MG

REACTIONS (2)
  - Drug ineffective [Unknown]
  - Non-cardiogenic pulmonary oedema [Unknown]
